FAERS Safety Report 22365872 (Version 1)
Quarter: 2023Q2

REPORT INFORMATION
  Report Type: Spontaneous
  Country: FR (occurrence: FR)
  Receive Date: 20230525
  Receipt Date: 20230525
  Transmission Date: 20230721
  Serious: Yes (Other)
  Sender: FDA-Public Use
  Company Number: None

PATIENT
  Age: 75 Year
  Sex: Female

DRUGS (13)
  1. METHOTREXATE [Suspect]
     Active Substance: METHOTREXATE
     Indication: Rheumatoid arthritis
     Dosage: 15 MG, QW
     Dates: start: 2019
  2. PLAVIX [Suspect]
     Active Substance: CLOPIDOGREL BISULFATE
     Indication: Rheumatoid arthritis
     Dosage: 75 MG, QD
     Dates: start: 20201209
  3. OXAZEPAM [Concomitant]
     Active Substance: OXAZEPAM
  4. ATORVASTATIN [Concomitant]
     Active Substance: ATORVASTATIN
  5. FOLIC ACID [Concomitant]
     Active Substance: FOLIC ACID
  6. TOVIAZ [Concomitant]
     Active Substance: FESOTERODINE FUMARATE
  7. DOLIPRANE [Concomitant]
     Active Substance: ACETAMINOPHEN
  8. PANTOPRAZOLE [Concomitant]
     Active Substance: PANTOPRAZOLE
  9. CHOLECALCIFEROL [Concomitant]
     Active Substance: CHOLECALCIFEROL
  10. TRULICITY [Concomitant]
     Active Substance: DULAGLUTIDE
  11. INDAPAMIDE [Concomitant]
     Active Substance: INDAPAMIDE
  12. CANDESARTAN CILEXETIL [Concomitant]
     Active Substance: CANDESARTAN CILEXETIL
  13. METFORMIN HYDROCHLORIDE [Concomitant]
     Active Substance: METFORMIN HYDROCHLORIDE

REACTIONS (2)
  - Injection site haematoma [Recovering/Resolving]
  - Injection site infection [Recovering/Resolving]

NARRATIVE: CASE EVENT DATE: 20230401
